FAERS Safety Report 8134977-8 (Version None)
Quarter: 2012Q1

REPORT INFORMATION
  Report Type: 
  Country: None (occurrence: None)
  Receive Date: 20120210
  Receipt Date: 20120206
  Transmission Date: 20120608
  Serious: Yes (Other)
  Sender: FDA-Public Use
  Company Number: AUR-APL-2012-00659

PATIENT
  Age: 74 Year
  Sex: Male

DRUGS (1)
  1. METOPROLOL TARTRATE [Suspect]
     Indication: PALPITATIONS

REACTIONS (2)
  - LICHENOID KERATOSIS [None]
  - DRUG ERUPTION [None]
